FAERS Safety Report 20183539 (Version 1)
Quarter: 2021Q4

REPORT INFORMATION
  Report Type: Spontaneous
  Country: US (occurrence: US)
  Receive Date: 20211214
  Receipt Date: 20211214
  Transmission Date: 20220303
  Serious: No
  Sender: FDA-Public Use
  Company Number: US-ABBVIE-21K-163-3869092-00

PATIENT
  Sex: Male

DRUGS (2)
  1. IMBRUVICA [Suspect]
     Active Substance: IBRUTINIB
     Indication: Chronic lymphocytic leukaemia
     Route: 048
  2. UKONIQ [Suspect]
     Active Substance: UMBRALISIB TOSYLATE
     Indication: Chronic lymphocytic leukaemia
     Route: 065

REACTIONS (2)
  - Full blood count abnormal [Unknown]
  - Lymphocyte count increased [Unknown]
